FAERS Safety Report 18422321 (Version 1)
Quarter: 2020Q4

REPORT INFORMATION
  Report Type: Report from Study
  Country: IR (occurrence: IR)
  Receive Date: 20201023
  Receipt Date: 20201023
  Transmission Date: 20210114
  Serious: Yes (Other)
  Sender: FDA-Public Use
  Company Number: IR-GLAXOSMITHKLINE-IR2020GSK211379

PATIENT
  Age: 30 Year
  Sex: Male

DRUGS (3)
  1. TERBINAFINE. [Suspect]
     Active Substance: TERBINAFINE
     Indication: TRICHOPHYTOSIS
     Dosage: 250 MG, 1D
  2. SERTACONAZOLE CREAM 2% [Suspect]
     Active Substance: SERTACONAZOLE
     Indication: TRICHOPHYTOSIS
     Dosage: UNK
  3. SULFUR SOAP [Concomitant]
     Active Substance: SULFUR
     Indication: PSORIASIS
     Dosage: UNK

REACTIONS (3)
  - Pathogen resistance [Unknown]
  - Drug ineffective [Unknown]
  - Drug resistance [Unknown]
